FAERS Safety Report 17155554 (Version 1)
Quarter: 2019Q4

REPORT INFORMATION
  Report Type: Spontaneous
  Country: US (occurrence: US)
  Receive Date: 20191215
  Receipt Date: 20191215
  Transmission Date: 20200122
  Serious: No
  Sender: FDA-Public Use
  Company Number: US-ENDO PHARMACEUTICALS INC-2019-103101

PATIENT
  Sex: Male
  Weight: 88.44 kg

DRUGS (1)
  1. XIAFLEX [Suspect]
     Active Substance: COLLAGENASE CLOSTRIDIUM HISTOLYTICUM
     Indication: PEYRONIE^S DISEASE
     Dosage: UNK UNKNOWN, UNKNOWN (CYCLE 1, INJECTION 1 + 2)
     Route: 026

REACTIONS (5)
  - Inappropriate schedule of product administration [Unknown]
  - Penile pain [Unknown]
  - Penile contusion [Unknown]
  - Gait disturbance [Unknown]
  - Contusion [Unknown]
